FAERS Safety Report 9169052 (Version 4)
Quarter: 2014Q4

REPORT INFORMATION
  Report Type: Spontaneous
  Country: US (occurrence: US)
  Receive Date: 20130318
  Receipt Date: 20141027
  Transmission Date: 20150529
  Serious: Yes (Hospitalization, Other)
  Sender: FDA-Public Use
  Company Number: US-GLAXOSMITHKLINE-A0916968A

PATIENT
  Age: 60 Year
  Sex: Female

DRUGS (10)
  1. LAMICTAL XR [Suspect]
     Active Substance: LAMOTRIGINE
     Indication: SEIZURE
     Dosage: 100 MG IN THE MORNING AND 200 MG IN THE EVENING
     Route: 048
     Dates: start: 201404
  2. PLAVIX [Suspect]
     Active Substance: CLOPIDOGREL BISULFATE
     Indication: PRODUCT USED FOR UNKNOWN INDICATION
     Dosage: ONE TABLET ALTERNATE DAYS
     Route: 065
  3. KLONOPIN [Concomitant]
     Active Substance: CLONAZEPAM
  4. KEPPRA [Concomitant]
     Active Substance: LEVETIRACETAM
  5. METOPROLOL [Concomitant]
     Active Substance: METOPROLOL
  6. SIMVASTATIN. [Concomitant]
     Active Substance: SIMVASTATIN
  7. DIOVAN [Concomitant]
     Active Substance: VALSARTAN
  8. LAMICTAL [Suspect]
     Active Substance: LAMOTRIGINE
     Indication: SEIZURE
     Dosage: 200 MG
     Route: 048
  9. PREDNISONE. [Suspect]
     Active Substance: PREDNISONE
     Indication: PRODUCT USED FOR UNKNOWN INDICATION
     Dosage: 40MG UNKNOWN DOSING, REDUCED DOSE TO 20 MG
     Dates: start: 2013
  10. BABY ASPIRIN [Concomitant]
     Active Substance: ASPIRIN

REACTIONS (24)
  - Stent placement [Unknown]
  - Seizure [Unknown]
  - Fall [Unknown]
  - Coma [Unknown]
  - Somnolence [Recovered/Resolved]
  - Large intestinal ulcer [Recovered/Resolved]
  - Contusion [Unknown]
  - Myocardial infarction [Unknown]
  - Head injury [Unknown]
  - Large intestine polyp [Recovered/Resolved]
  - Drug dispensing error [Unknown]
  - Dyspnoea [Unknown]
  - Drug effect increased [Unknown]
  - Skin discolouration [Unknown]
  - Amnesia [Unknown]
  - Parosmia [Unknown]
  - Drug administration error [Unknown]
  - Granuloma [Recovered/Resolved]
  - Adverse event [Recovered/Resolved]
  - Euphoric mood [Unknown]
  - Upper limb fracture [Unknown]
  - Clavicle fracture [Unknown]
  - Wrong drug administered [Unknown]
  - Daydreaming [Unknown]

NARRATIVE: CASE EVENT DATE: 200709
